FAERS Safety Report 20406248 (Version 1)
Quarter: 2022Q1

REPORT INFORMATION
  Report Type: Spontaneous
  Country: US (occurrence: US)
  Receive Date: 20220131
  Receipt Date: 20220131
  Transmission Date: 20220424
  Serious: No
  Sender: FDA-Public Use
  Company Number: US-GALDERMA-US2021020283

PATIENT

DRUGS (5)
  1. PROACTIV MD ADAPALENE ACNE TREATMENT [Suspect]
     Active Substance: ADAPALENE
     Indication: Acne cystic
     Dosage: 1 DOSAGE FORM, QD, ONCE A DAY
     Route: 061
     Dates: start: 202009, end: 202012
  2. PROACTIV MD DAILY OIL CONTROL SPF 30 [Suspect]
     Active Substance: AVOBENZONE\OCTISALATE\OCTOCRYLENE
     Indication: Acne cystic
     Dosage: 1 DOSAGE FORM, QD, EVERY MORNING
     Route: 061
     Dates: start: 202009, end: 202012
  3. COSMETICS [Concomitant]
     Active Substance: COSMETICS
     Indication: Acne cystic
     Dosage: 1 DOSAGE FORM, QD, ONCE A DAY
     Route: 061
     Dates: start: 202009, end: 202012
  4. COSMETICS [Concomitant]
     Active Substance: COSMETICS
     Indication: Acne cystic
     Dosage: 1 DOSAGE FORM, BIW, TWICE A WEEK
     Route: 061
     Dates: start: 202009, end: 202012
  5. COSMETICS [Concomitant]
     Active Substance: COSMETICS
     Indication: Acne cystic
     Dosage: 1 DOSAGE FORM, EVERY NIGHT THEN 2-3 TIMES A WEEK
     Route: 061
     Dates: start: 202009, end: 202012

REACTIONS (6)
  - Acne [Recovering/Resolving]
  - Erythema [Recovering/Resolving]
  - Dry skin [Recovering/Resolving]
  - Skin irritation [Recovering/Resolving]
  - Sensitive skin [Recovering/Resolving]
  - Product use in unapproved indication [Recovered/Resolved]

NARRATIVE: CASE EVENT DATE: 20200101
